FAERS Safety Report 5255518-9 (Version None)
Quarter: 2007Q1

REPORT INFORMATION
  Report Type: 
  Country: None (occurrence: None)
  Receive Date: 20070305
  Receipt Date: 20070219
  Transmission Date: 20070707
  Serious: Yes (Disabling)
  Sender: FDA-Public Use
  Company Number: GB-SHR-GB-2007-005839

PATIENT
  Age: 25 Year
  Sex: Male

DRUGS (1)
  1. ULTRAVIST 240 [Suspect]
     Indication: ARTHROGRAM
     Dates: start: 20061105

REACTIONS (6)
  - ARTHRALGIA [None]
  - ARTHROPATHY [None]
  - EXOSTOSIS [None]
  - MUSCULOSKELETAL DISCOMFORT [None]
  - TYPE IV HYPERSENSITIVITY REACTION [None]
  - WEIGHT BEARING DIFFICULTY [None]
